FAERS Safety Report 8957292 (Version 1)
Quarter: 2012Q4

REPORT INFORMATION
  Report Type: Spontaneous
  Country: DK (occurrence: None)
  Receive Date: 20121130
  Receipt Date: 20121130
  Transmission Date: 20130627
  Serious: Yes (Hospitalization)
  Sender: FDA-Public Use
  Company Number: 2012MA013656

PATIENT
  Age: 63 Year
  Sex: Male

DRUGS (2)
  1. DICLOFENAC SODIUM EXTENDED-RELEASE [Suspect]
     Route: 048
     Dates: start: 201205, end: 201205
  2. OMEPRAZOLE [Concomitant]

REACTIONS (4)
  - Anaphylactoid reaction [None]
  - Pruritus [None]
  - Gastrointestinal disorder [None]
  - Fall [None]
